FAERS Safety Report 15534320 (Version 1)
Quarter: 2018Q4

REPORT INFORMATION
  Report Type: Spontaneous
  Country: CL (occurrence: CL)
  Receive Date: 20181021
  Receipt Date: 20181021
  Transmission Date: 20190205
  Serious: Yes (Other)
  Sender: FDA-Public Use
  Company Number: PHHY2018CL126928

PATIENT
  Age: 44 Year
  Sex: Female

DRUGS (1)
  1. HYDROXYCHLOROQUINE [Suspect]
     Active Substance: HYDROXYCHLOROQUINE
     Indication: PRODUCT USED FOR UNKNOWN INDICATION
     Dosage: 200 MG, QD
     Route: 065
     Dates: start: 1993, end: 2011

REACTIONS (9)
  - Retinal cyst [Unknown]
  - Autoimmune retinopathy [Unknown]
  - Entropion [Unknown]
  - Optic atrophy [Unknown]
  - Visual acuity reduced [Unknown]
  - Acute zonal occult outer retinopathy [Unknown]
  - Disease progression [Unknown]
  - Visual field defect [Unknown]
  - Night blindness [Unknown]
